FAERS Safety Report 7607095-2 (Version None)
Quarter: 2011Q3

REPORT INFORMATION
  Report Type: 
  Country: None (occurrence: None)
  Receive Date: 20110713
  Receipt Date: 20110630
  Transmission Date: 20111222
  Serious: Yes (Other)
  Sender: FDA-Public Use
  Company Number: US-UCBSA-034442

PATIENT
  Sex: Female
  Weight: 85.9 kg

DRUGS (11)
  1. VITAMIN D [Concomitant]
     Dosage: 50,000 UNITS, 4 TABLETS, 200,000 MONTHLY
     Route: 048
     Dates: start: 20110114
  2. CIMZIA [Suspect]
     Indication: CROHN'S DISEASE
     Dosage: START 29-JAN-2011:UNKNOWN DOSE:EXPIRY ??-AUG-2011
     Route: 058
  3. TRAMADOL HCL [Concomitant]
     Indication: FIBROMYALGIA
     Dosage: 50 MG PRN:AS NEEDED
     Route: 048
     Dates: start: 20100909
  4. BUPROPION HYDROCHLORIDE [Concomitant]
     Indication: DEPRESSION
     Route: 048
     Dates: start: 20101118
  5. CYMBALTA [Concomitant]
     Indication: FIBROMYALGIA
     Route: 048
     Dates: start: 20100729
  6. VITAMIN B-12 [Concomitant]
     Route: 058
     Dates: start: 20090910
  7. CALCIUM + VITAMIN D [Concomitant]
     Dosage: ONE TAB TWICE DAILY
     Route: 048
  8. EXCEDRIN (MIGRAINE) [Concomitant]
     Indication: MIGRAINE
     Dosage: 2 TABS ONCE A DAY AS NEEDED (PRN)
     Route: 048
     Dates: start: 20101201
  9. CLARINEX [Concomitant]
     Route: 048
     Dates: start: 20110401
  10. FLEXERIL [Concomitant]
     Indication: FIBROMYALGIA
     Dosage: 10 MG PRN
     Route: 048
  11. M.V.I. [Concomitant]
     Route: 048

REACTIONS (4)
  - DIARRHOEA [None]
  - RECTAL ABSCESS [None]
  - DECREASED APPETITE [None]
  - ABDOMINAL PAIN [None]
